FAERS Safety Report 17968573 (Version 1)
Quarter: 2020Q3

REPORT INFORMATION
  Report Type: Spontaneous
  Country: US (occurrence: US)
  Receive Date: 20200701
  Receipt Date: 20200701
  Transmission Date: 20201103
  Serious: No
  Sender: FDA-Public Use
  Company Number: None

PATIENT
  Age: 75 Year
  Sex: Female
  Weight: 80 kg

DRUGS (18)
  1. DIGOXIN. [Concomitant]
     Active Substance: DIGOXIN
  2. LOMOTIL [Concomitant]
     Active Substance: ATROPINE SULFATE\DIPHENOXYLATE HYDROCHLORIDE
  3. EVEROLIMUS. [Suspect]
     Active Substance: EVEROLIMUS
     Indication: CHOLANGIOCARCINOMA
     Route: 048
     Dates: start: 20200428, end: 20200701
  4. EXEMESTANE. [Concomitant]
     Active Substance: EXEMESTANE
  5. EVEROLIMUS. [Suspect]
     Active Substance: EVEROLIMUS
     Indication: BREAST CANCER
     Route: 048
     Dates: start: 20200428, end: 20200701
  6. SINGULAIR [Concomitant]
     Active Substance: MONTELUKAST SODIUM
  7. DEXAMETHASONE. [Concomitant]
     Active Substance: DEXAMETHASONE
  8. CURCUMIN 95 [Concomitant]
  9. DULOXETINE. [Concomitant]
     Active Substance: DULOXETINE
  10. TRAMADOL. [Concomitant]
     Active Substance: TRAMADOL
  11. METHYLPENIDATE [Concomitant]
  12. PROCHLORPERAZINE. [Concomitant]
     Active Substance: PROCHLORPERAZINE
  13. LEVOCETIRIZINE [Concomitant]
     Active Substance: LEVOCETIRIZINE
  14. VITAMIN D3 [Concomitant]
     Active Substance: CHOLECALCIFEROL
  15. METOPROLOL ER [Concomitant]
     Active Substance: METOPROLOL SUCCINATE
  16. LASIX [Concomitant]
     Active Substance: FUROSEMIDE
  17. VENLAFAXINE [Concomitant]
     Active Substance: VENLAFAXINE HYDROCHLORIDE
  18. PANTOPRAZOLE [Concomitant]
     Active Substance: PANTOPRAZOLE

REACTIONS (1)
  - Disease progression [None]
